FAERS Safety Report 17707247 (Version 3)
Quarter: 2020Q2

REPORT INFORMATION
  Report Type: Spontaneous
  Country: DE (occurrence: DE)
  Receive Date: 20200424
  Receipt Date: 20200429
  Transmission Date: 20200714
  Serious: Yes (Death)
  Sender: FDA-Public Use
  Company Number: DE-ABBVIE-20K-062-3378522-00

PATIENT
  Sex: Male

DRUGS (1)
  1. RITONAVIR. [Suspect]
     Active Substance: RITONAVIR
     Indication: HIV INFECTION
     Route: 048

REACTIONS (1)
  - Neoplasm malignant [Fatal]
